FAERS Safety Report 5847484-X (Version None)
Quarter: 2008Q3

REPORT INFORMATION
  Report Type: 
  Country: None (occurrence: None)
  Receive Date: 20080814
  Receipt Date: 20080730
  Transmission Date: 20090109
  Serious: Yes (Death)
  Sender: FDA-Public Use
  Company Number: AZAUS200800249

PATIENT
  Age: 53 Year
  Sex: Male
  Weight: 100 kg

DRUGS (3)
  1. VIDAZA [Suspect]
     Indication: MYELODYSPLASTIC SYNDROME
     Dosage: 75 MG/M2, DAILY X 7 DAYS
     Dates: start: 20080401, end: 20080401
  2. ATORVASTATIN CALCIUM [Concomitant]
  3. MONTELUKAST SODIUM [Concomitant]

REACTIONS (1)
  - HEPATIC FAILURE [None]
